FAERS Safety Report 16533848 (Version 2)
Quarter: 2019Q3

REPORT INFORMATION
  Report Type: Spontaneous
  Country: US (occurrence: US)
  Receive Date: 20190704
  Receipt Date: 20190709
  Transmission Date: 20191004
  Serious: Yes (Other)
  Sender: FDA-Public Use
  Company Number: US-ASTRAZENECA-2018SF34821

PATIENT
  Age: 61 Year
  Sex: Female
  Weight: 70.8 kg

DRUGS (24)
  1. CATAPRES [Concomitant]
     Active Substance: CLONIDINE HYDROCHLORIDE
  2. NEXIUM [Suspect]
     Active Substance: ESOMEPRAZOLE MAGNESIUM
     Indication: GASTROOESOPHAGEAL REFLUX DISEASE
     Route: 048
     Dates: start: 200808, end: 201511
  3. NEXIUM [Suspect]
     Active Substance: ESOMEPRAZOLE MAGNESIUM
     Indication: GASTROOESOPHAGEAL REFLUX DISEASE
     Route: 048
     Dates: start: 2008, end: 2015
  4. ATORVASTATIN [Concomitant]
     Active Substance: ATORVASTATIN
  5. IBUPROFEN. [Concomitant]
     Active Substance: IBUPROFEN
  6. PREDNISONE. [Concomitant]
     Active Substance: PREDNISONE
  7. PROAIR HFA [Concomitant]
     Active Substance: ALBUTEROL SULFATE
  8. CAPSAICIN. [Concomitant]
     Active Substance: CAPSAICIN
  9. NORVASC [Concomitant]
     Active Substance: AMLODIPINE BESYLATE
  10. COREG [Concomitant]
     Active Substance: CARVEDILOL
  11. TRAMADOL. [Concomitant]
     Active Substance: TRAMADOL
  12. BENZONATATE. [Concomitant]
     Active Substance: BENZONATATE
  13. NICOTINE. [Concomitant]
     Active Substance: NICOTINE
  14. OMEPRAZOLE. [Suspect]
     Active Substance: OMEPRAZOLE
     Indication: GASTROOESOPHAGEAL REFLUX DISEASE
     Route: 065
     Dates: start: 2008, end: 2015
  15. SERTRALINE [Concomitant]
     Active Substance: SERTRALINE HYDROCHLORIDE
  16. CEFDINIR. [Concomitant]
     Active Substance: CEFDINIR
  17. HYDROCHLOROTHIAZIDE. [Concomitant]
     Active Substance: HYDROCHLOROTHIAZIDE
  18. PROMETHAZINE [Concomitant]
     Active Substance: PROMETHAZINE HYDROCHLORIDE
  19. PENTOXIFYLLINE. [Concomitant]
     Active Substance: PENTOXIFYLLINE
  20. HYDROCODONE [Concomitant]
     Active Substance: HYDROCODONE
  21. LOSARTAN. [Concomitant]
     Active Substance: LOSARTAN
  22. CILOSTAZOL. [Concomitant]
     Active Substance: CILOSTAZOL
  23. LORATADINE. [Concomitant]
     Active Substance: LORATADINE
  24. RANITIDINE. [Concomitant]
     Active Substance: RANITIDINE

REACTIONS (5)
  - End stage renal disease [Not Recovered/Not Resolved]
  - Acute kidney injury [Unknown]
  - Chronic kidney disease [Not Recovered/Not Resolved]
  - Renal failure [Unknown]
  - Renal injury [Unknown]

NARRATIVE: CASE EVENT DATE: 2012
